FAERS Safety Report 5186953-5 (Version None)
Quarter: 2006Q4

REPORT INFORMATION
  Report Type: 
  Country: None (occurrence: None)
  Receive Date: 20061212
  Receipt Date: 20061129
  Transmission Date: 20070319
  Serious: Yes (Death, Life-Threatening, Hospitalization)
  Sender: FDA-Public Use
  Company Number: 2005BH003540

PATIENT
  Age: 65 Year
  Sex: Male

DRUGS (10)
  1. VANCOCIN HCL [Suspect]
     Indication: STAPHYLOCOCCAL BACTERAEMIA
     Dosage: 1 GM; 2X A DAY; IV
     Route: 042
     Dates: start: 20040913, end: 20040920
  2. PREDNISONE TAB [Suspect]
     Indication: ILL-DEFINED DISORDER
     Dosage: PO
     Route: 048
     Dates: start: 20040902
  3. SIROLIMUS [Suspect]
     Indication: ILL-DEFINED DISORDER
     Dosage: PO
     Route: 048
     Dates: start: 20040602
  4. LEVOTHYROXINE SODIUM [Concomitant]
  5. OMEPRAZOLE [Concomitant]
  6. ITRACONAZOLE [Concomitant]
  7. GANCICLOVIR [Concomitant]
  8. PRAVASTATIN [Concomitant]
  9. SENNOSIDE A [Concomitant]
  10. ALBUMIN (HUMAN) [Concomitant]

REACTIONS (20)
  - ASPERGILLOSIS [None]
  - BACTERIAL INFECTION [None]
  - CATHETER RELATED INFECTION [None]
  - DRUG INEFFECTIVE [None]
  - ENDOCARDITIS BACTERIAL [None]
  - HAEMOPTYSIS [None]
  - HEART TRANSPLANT [None]
  - HYPOPERFUSION [None]
  - LUNG INFECTION [None]
  - NO THERAPEUTIC RESPONSE [None]
  - OLIGURIA [None]
  - PLEURAL EFFUSION [None]
  - PROCEDURAL COMPLICATION [None]
  - PULMONARY INFARCTION [None]
  - RENAL FAILURE ACUTE [None]
  - RENAL TUBULAR NECROSIS [None]
  - SEPTIC EMBOLUS [None]
  - SHOCK [None]
  - SUBCUTANEOUS EMPHYSEMA [None]
  - THROMBOCYTOPENIA [None]
